FAERS Safety Report 7321875-2 (Version None)
Quarter: 2011Q1

REPORT INFORMATION
  Report Type: 
  Country: None (occurrence: None)
  Receive Date: 20110228
  Receipt Date: 20110215
  Transmission Date: 20110831
  Serious: Yes (Other)
  Sender: FDA-Public Use
  Company Number: JP-ELI_LILLY_AND_COMPANY-JP201102004982

PATIENT
  Age: 36 Year
  Sex: Female

DRUGS (4)
  1. PEMETREXED [Suspect]
     Indication: BRONCHIOLOALVEOLAR CARCINOMA
     Dosage: 500 MG/M2, UNKNOWN
     Route: 042
     Dates: start: 20090601
  2. FOLIC ACID [Concomitant]
     Indication: SUPPLEMENTATION THERAPY
     Dosage: UNK, UNKNOWN
     Route: 065
     Dates: start: 20090601
  3. PEMETREXED [Suspect]
     Dosage: 400 MG/M2, UNKNOWN
     Route: 042
  4. VITAMIN B-12 [Concomitant]
     Indication: SUPPLEMENTATION THERAPY
     Dosage: UNK, UNKNOWN
     Route: 065
     Dates: start: 20090601

REACTIONS (4)
  - FATIGUE [None]
  - SKIN HYPERPIGMENTATION [None]
  - URTICARIA [None]
  - HEPATIC FUNCTION ABNORMAL [None]
